FAERS Safety Report 7810718-6 (Version None)
Quarter: 2011Q4

REPORT INFORMATION
  Report Type: 
  Country: None (occurrence: None)
  Receive Date: 20111006
  Receipt Date: 20110927
  Transmission Date: 20120403
  Serious: No
  Sender: FDA-Public Use
  Company Number: KV201100203

PATIENT
  Age: 23 Year
  Sex: Female

DRUGS (1)
  1. MAKENA [Suspect]
     Indication: PREMATURE DELIVERY
     Dosage: 250MG, ONCE WEEKLY, INTRAMUSCULAR
     Route: 030

REACTIONS (7)
  - CERVIX ENLARGEMENT [None]
  - MATERNAL EXPOSURE DURING PREGNANCY [None]
  - TWIN PREGNANCY [None]
  - OFF LABEL USE [None]
  - CAESAREAN SECTION [None]
  - BREECH PRESENTATION [None]
  - UTERINE CONTRACTIONS DURING PREGNANCY [None]
